FAERS Safety Report 5140740-2 (Version None)
Quarter: 2006Q4

REPORT INFORMATION
  Report Type: 
  Country: None (occurrence: None)
  Receive Date: 20061025
  Receipt Date: 20061011
  Transmission Date: 20070319
  Serious: Yes (Other)
  Sender: FDA-Public Use
  Company Number: 161-20785-06100785

PATIENT
  Age: 52 Year
  Sex: Male

DRUGS (4)
  1. THALOMID [Suspect]
     Indication: MULTIPLE MYELOMA
     Dosage: ORAL
     Route: 048
  2. VINCRISTINE [Suspect]
     Indication: MULTIPLE MYELOMA
  3. ADRIAMYCIN PFS [Suspect]
     Indication: MULTIPLE MYELOMA
  4. DEXAMETHASONE TAB [Suspect]
     Indication: DRUG USE FOR UNKNOWN INDICATION

REACTIONS (1)
  - HEPATITIS B [None]
